FAERS Safety Report 7588547-0 (Version None)
Quarter: 2011Q3

REPORT INFORMATION
  Report Type: 
  Country: None (occurrence: None)
  Receive Date: 20110705
  Receipt Date: 20110624
  Transmission Date: 20111222
  Serious: Yes (Other)
  Sender: FDA-Public Use
  Company Number: US-US-EMD SERONO, INC.-7062020

PATIENT
  Sex: Male
  Weight: 136 kg

DRUGS (8)
  1. REBIF [Suspect]
     Indication: MULTIPLE SCLEROSIS
     Route: 058
     Dates: start: 20091030
  2. NAPROXEN [Concomitant]
     Indication: PAIN
  3. VYTORIN [Concomitant]
     Indication: BLOOD CHOLESTEROL INCREASED
  4. REBIF [Suspect]
     Route: 058
  5. REBIF [Suspect]
     Route: 058
  6. LOTREL [Concomitant]
     Indication: HYPERTENSION
  7. SOMA [Concomitant]
     Indication: PAIN
     Dates: start: 20110301
  8. DIOVAN [Concomitant]
     Indication: HYPERTENSION

REACTIONS (5)
  - MUSCLE SPASMS [None]
  - INFLUENZA LIKE ILLNESS [None]
  - INTERVERTEBRAL DISC PROTRUSION [None]
  - FALL [None]
  - INJECTION SITE ERYTHEMA [None]
